FAERS Safety Report 12806206 (Version 4)
Quarter: 2017Q2

REPORT INFORMATION
  Report Type: Report from Study
  Country: CO (occurrence: CO)
  Receive Date: 20161004
  Receipt Date: 20170406
  Transmission Date: 20170830
  Serious: Yes (Hospitalization)
  Sender: FDA-Public Use
  Company Number: PHHY2016CO123293

PATIENT
  Age: 33 Year
  Sex: Female
  Weight: 69 kg

DRUGS (6)
  1. REVOLADE [Suspect]
     Active Substance: ELTROMBOPAG
     Dosage: 25 MG, QD
     Route: 048
     Dates: start: 201701
  2. ACETAMINOPHEN. [Concomitant]
     Active Substance: ACETAMINOPHEN
     Indication: PAIN
     Dosage: (OCCASIONALLY WHEN PATIENT PRESENTS PAIN)
     Route: 065
  3. PREDNISOLON [Concomitant]
     Active Substance: PREDNISOLONE
     Dosage: 30 MG, QD
     Route: 051
  4. PREDNISOLON [Concomitant]
     Active Substance: PREDNISOLONE
     Dosage: 20 MG, UNK
     Route: 051
  5. PREDNISOLON [Concomitant]
     Active Substance: PREDNISOLONE
     Indication: PRODUCT USED FOR UNKNOWN INDICATION
     Dosage: 40 MG, QD
     Route: 051
  6. REVOLADE [Suspect]
     Active Substance: ELTROMBOPAG
     Indication: IMMUNE THROMBOCYTOPENIC PURPURA
     Dosage: 25 MG, BID
     Route: 048
     Dates: start: 20160830

REACTIONS (8)
  - Blindness [Recovering/Resolving]
  - Exposure during breast feeding [Unknown]
  - Platelet count decreased [Unknown]
  - Cerebral haemorrhage [Recovering/Resolving]
  - Cerebral thrombosis [Recovering/Resolving]
  - Headache [Recovering/Resolving]
  - Vision blurred [Unknown]
  - Speech disorder [Unknown]

NARRATIVE: CASE EVENT DATE: 20160908
